FAERS Safety Report 16102097 (Version 1)
Quarter: 2019Q1

REPORT INFORMATION
  Report Type: Spontaneous
  Country: JP (occurrence: JP)
  Receive Date: 20190321
  Receipt Date: 20190321
  Transmission Date: 20190418
  Serious: Yes (Life-Threatening, Other)
  Sender: FDA-Public Use
  Company Number: JP-UNICHEM PHARMACEUTICALS (USA) INC-UCM201903-000108

PATIENT
  Age: 69 Year
  Sex: Male

DRUGS (9)
  1. AMLODIPINE [Concomitant]
     Active Substance: AMLODIPINE BESYLATE
     Indication: HYPERTENSION
     Dosage: UNK
  2. ASPIRIN. [Concomitant]
     Active Substance: ASPIRIN
     Route: 048
  3. EPLERENONE. [Concomitant]
     Active Substance: EPLERENONE
     Route: 048
  4. PRASUGREL. [Concomitant]
     Active Substance: PRASUGREL
     Route: 048
  5. LISINOPRIL. [Concomitant]
     Active Substance: LISINOPRIL
     Route: 048
  6. BISOPROLOL FUMARATE. [Suspect]
     Active Substance: BISOPROLOL FUMARATE
     Route: 048
  7. VALSARTAN. [Concomitant]
     Active Substance: VALSARTAN
     Indication: HYPERTENSION
  8. AMLODIPINE [Concomitant]
     Active Substance: AMLODIPINE BESYLATE
  9. ROSUVASTATIN. [Concomitant]
     Active Substance: ROSUVASTATIN
     Route: 048

REACTIONS (4)
  - Electrocardiogram ST segment elevation [Unknown]
  - Prinzmetal angina [Recovered/Resolved]
  - Arteriospasm coronary [Recovered/Resolved]
  - Atrial fibrillation [Unknown]
